FAERS Safety Report 8241376-7 (Version None)
Quarter: 2012Q1

REPORT INFORMATION
  Report Type: 
  Country: None (occurrence: None)
  Receive Date: 20120328
  Receipt Date: 20120320
  Transmission Date: 20120608
  Serious: Yes (Other)
  Sender: FDA-Public Use
  Company Number: PHHY2012US024343

PATIENT
  Age: 24 Year
  Sex: Female

DRUGS (6)
  1. DOXORUBICIN HCL [Suspect]
     Indication: BREAST CANCER IN SITU
  2. DOXORUBICIN HCL [Suspect]
     Indication: CHEMOTHERAPY
  3. PACLITAXEL [Suspect]
     Indication: BREAST CANCER IN SITU
  4. PACLITAXEL [Suspect]
     Indication: CHEMOTHERAPY
  5. CYCLOPHOSPHAMIDE [Suspect]
     Indication: BREAST CANCER IN SITU
  6. CYCLOPHOSPHAMIDE [Suspect]
     Indication: CHEMOTHERAPY

REACTIONS (10)
  - COGNITIVE DISORDER [None]
  - DELAYED SLEEP PHASE [None]
  - SLEEP DISORDER [None]
  - ADJUSTMENT DISORDER [None]
  - MEMORY IMPAIRMENT [None]
  - DISTRACTIBILITY [None]
  - DEPRESSION [None]
  - APHASIA [None]
  - INSOMNIA [None]
  - DISTURBANCE IN ATTENTION [None]
